FAERS Safety Report 8451850-6 (Version None)
Quarter: 2012Q2

REPORT INFORMATION
  Report Type: 
  Country: None (occurrence: None)
  Receive Date: 20120620
  Receipt Date: 20120320
  Transmission Date: 20120825
  Serious: No
  Sender: FDA-Public Use
  Company Number: US-VERTEX PHARMACEUTICALS INC.-AE-2012-004116

PATIENT
  Sex: Female
  Weight: 68.554 kg

DRUGS (5)
  1. INCIVEK [Suspect]
     Indication: HEPATITIS C
     Route: 048
     Dates: start: 20111215, end: 20120308
  2. RIBAVIRIN [Concomitant]
     Indication: HEPATITIS C
     Route: 048
     Dates: start: 20111215
  3. LORAZEPAM [Concomitant]
     Indication: ANXIETY
     Route: 048
  4. CLINDAMYCIN [Concomitant]
     Indication: TOOTH INFECTION
     Route: 048
  5. PEGASYS [Concomitant]
     Indication: HEPATITIS C
     Route: 058
     Dates: start: 20111215

REACTIONS (4)
  - DRUG INEFFECTIVE [None]
  - ANXIETY [None]
  - IRRITABILITY [None]
  - RASH PRURITIC [None]
